FAERS Safety Report 4665210-7 (Version None)
Quarter: 2005Q2

REPORT INFORMATION
  Report Type: 
  Country: None (occurrence: None)
  Receive Date: 20050518
  Receipt Date: 20040612
  Transmission Date: 20051028
  Serious: Yes (Hospitalization)
  Sender: FDA-Public Use
  Company Number: SE-MERCK-0406SWE00010

PATIENT
  Age: 15 Year
  Sex: Male

DRUGS (6)
  1. SINGULAIR [Suspect]
     Indication: ASTHMA
     Route: 048
     Dates: start: 20021101, end: 20040101
  2. SINGULAIR [Suspect]
     Route: 048
     Dates: start: 20040101, end: 20040403
  3. FORMOTEROL FUMARATE [Concomitant]
     Route: 065
  4. DESLORATADINE [Concomitant]
     Route: 065
  5. TERBUTALINE SULFATE [Concomitant]
     Route: 065
  6. BUDESONIDE AND FORMOTEROL FUMARATE [Concomitant]
     Route: 065

REACTIONS (3)
  - COLITIS ULCERATIVE [None]
  - URTICARIA [None]
  - WEIGHT DECREASED [None]
